FAERS Safety Report 8978609 (Version 1)
Quarter: 2012Q4

REPORT INFORMATION
  Report Type: 
  Country: US (occurrence: US)
  Receive Date: 20121220
  Receipt Date: 20121220
  Transmission Date: 20130627
  Serious: Yes (Hospitalization, Other)
  Sender: FDA-Public Use
  Company Number: US-WATSON-2012-22158

PATIENT
  Age: 41 Year
  Sex: Female
  Weight: 127 kg

DRUGS (6)
  1. FIORICET 50/325/40 (WATSON LABORATORIES) [Suspect]
     Indication: HEADACHE
     Dosage: 1 tablet, every 6 hours
     Route: 048
  2. REBIF [Suspect]
     Indication: MULTIPLE SCLEROSIS
     Dosage: 8.8 mcg, 3 in 1 wk
     Route: 058
     Dates: start: 20121029, end: 20121108
  3. ELAVIL                             /00002202/ [Suspect]
     Indication: MIGRAINE
     Dosage: 50 mg, at bed time
     Route: 048
  4. TYLENOL [Suspect]
     Indication: PRODUCT USED FOR UNKNOWN INDICATION
     Dosage: UNK, unknown
     Route: 065
  5. METOPROLOL [Concomitant]
     Indication: PRODUCT USED FOR UNKNOWN INDICATION
     Dosage: UNK, unknown
     Route: 065
  6. GABAPENTIN [Concomitant]
     Indication: PARAESTHESIA
     Dosage: 300 mg, at bed time
     Route: 048

REACTIONS (11)
  - Mallory-Weiss syndrome [Not Recovered/Not Resolved]
  - Gastric ulcer [Unknown]
  - Appendicitis [Unknown]
  - Hepatomegaly [Unknown]
  - Chest discomfort [Unknown]
  - Chest pain [Unknown]
  - Liver function test abnormal [Unknown]
  - Incision site infection [None]
  - Respiratory distress [Unknown]
  - Vomiting [Unknown]
  - Nausea [Unknown]
